FAERS Safety Report 22128929 (Version 1)
Quarter: 2023Q1

REPORT INFORMATION
  Report Type: Spontaneous
  Country: US (occurrence: US)
  Receive Date: 20230323
  Receipt Date: 20230323
  Transmission Date: 20230417
  Serious: Yes (Hospitalization, Other)
  Sender: FDA-Public Use
  Company Number: US-BRISTOL-MYERS SQUIBB COMPANY-2023-040443

PATIENT
  Age: 79 Year
  Sex: Female

DRUGS (1)
  1. REVLIMID [Suspect]
     Active Substance: LENALIDOMIDE
     Indication: Plasma cell myeloma
     Dosage: ONCE DAILY FOR 21 DAYS ON AND 7?DAYS OFF
     Route: 048
     Dates: start: 20221130

REACTIONS (3)
  - Respiratory syncytial virus infection [Recovering/Resolving]
  - Clostridium difficile infection [Recovering/Resolving]
  - Dizziness [Recovering/Resolving]
